FAERS Safety Report 6400959-7 (Version None)
Quarter: 2009Q4

REPORT INFORMATION
  Report Type: 
  Country: None (occurrence: None)
  Receive Date: 20091015
  Receipt Date: 20070821
  Transmission Date: 20100525
  Serious: Yes (Other)
  Sender: FDA-Public Use
  Company Number: US-ASTRAZENECA-2006UW24254

PATIENT
  Age: 21080 Day
  Sex: Male
  Weight: 103.4 kg

DRUGS (24)
  1. SEROQUEL [Suspect]
     Indication: BIPOLAR DISORDER
     Dosage: 25 MG-300 MG
     Route: 048
     Dates: start: 20001214
  2. SEROQUEL [Suspect]
     Indication: DEPRESSION
     Dosage: 25 MG-300 MG
     Route: 048
     Dates: start: 20001214
  3. SEROQUEL [Suspect]
     Indication: INSOMNIA
     Dosage: 25 MG-300 MG
     Route: 048
     Dates: start: 20001214
  4. SEROQUEL [Suspect]
     Route: 048
     Dates: start: 20010101
  5. SEROQUEL [Suspect]
     Route: 048
     Dates: start: 20010101
  6. SEROQUEL [Suspect]
     Route: 048
     Dates: start: 20010101
  7. HALDOL [Concomitant]
     Dates: start: 19970101, end: 20060101
  8. ZYPREXA [Concomitant]
     Dates: start: 19970101
  9. ZYPREXA [Concomitant]
     Dates: start: 19990924
  10. PROZAC [Concomitant]
     Dates: start: 20001214
  11. ELAVIL [Concomitant]
     Dosage: 25MG-75MG
     Dates: start: 19990924
  12. ZOLOFT [Concomitant]
     Dates: start: 19990924
  13. VIOXX [Concomitant]
     Dates: start: 20001214
  14. LEXAPRO [Concomitant]
     Dates: start: 20040714
  15. ACIPHEX [Concomitant]
     Dates: start: 20040714
  16. ZONEGRAN [Concomitant]
     Dates: start: 20040714
  17. TRILEPTAL [Concomitant]
     Dates: start: 20040714
  18. VIAGRA [Concomitant]
     Dates: start: 20040811
  19. NAMENDA [Concomitant]
     Dates: start: 20040908
  20. HUMULIN R [Concomitant]
     Dosage: 70/30 25 UNITS B.I.D
     Dates: start: 20020410
  21. XANAX [Concomitant]
     Dates: start: 19990924
  22. NEURONTIN [Concomitant]
     Dosage: 400 MG-1200 MG
     Dates: start: 20000329
  23. NEURONTIN [Concomitant]
     Dates: start: 20001205
  24. NORVASC [Concomitant]
     Dates: start: 20000329

REACTIONS (6)
  - DIABETES MELLITUS [None]
  - DIABETIC NEPHROPATHY [None]
  - DIABETIC NEUROPATHY [None]
  - HYPOGLYCAEMIA [None]
  - NEUROPATHY PERIPHERAL [None]
  - TYPE 1 DIABETES MELLITUS [None]
